FAERS Safety Report 10235642 (Version 1)
Quarter: 2014Q2

REPORT INFORMATION
  Report Type: Spontaneous
  Country: GB (occurrence: GB)
  Receive Date: 20140613
  Receipt Date: 20140613
  Transmission Date: 20141212
  Serious: Yes (Other)
  Sender: FDA-Public Use
  Company Number: PHHY2014GB071708

PATIENT
  Age: 36 Year
  Sex: Male
  Weight: 64 kg

DRUGS (2)
  1. PARACETAMOL [Suspect]
     Dates: start: 20140526
  2. METHADONE [Concomitant]
     Indication: DRUG ABUSE
     Dates: start: 20140219

REACTIONS (1)
  - Abdominal discomfort [Unknown]
